FAERS Safety Report 20342883 (Version 1)
Quarter: 2022Q1

REPORT INFORMATION
  Report Type: Spontaneous
  Country: US (occurrence: US)
  Receive Date: 20220117
  Receipt Date: 20220117
  Transmission Date: 20220423
  Serious: No
  Sender: FDA-Public Use
  Company Number: US-TAKEDA-2022TUS002277

PATIENT
  Sex: Male
  Weight: 105 kg

DRUGS (1)
  1. FOSRENOL [Suspect]
     Active Substance: LANTHANUM CARBONATE
     Indication: Dialysis
     Dosage: 1000 MILLIGRAM, TID
     Route: 065

REACTIONS (1)
  - Body height decreased [Unknown]
